FAERS Safety Report 12599114 (Version 1)
Quarter: 2016Q3

REPORT INFORMATION
  Report Type: Spontaneous
  Country: US (occurrence: None)
  Receive Date: 20160726
  Receipt Date: 20160726
  Transmission Date: 20161109
  Serious: No
  Sender: FDA-Public Use
  Company Number: None

PATIENT
  Age: 8 Year
  Sex: Female
  Weight: 50.35 kg

DRUGS (1)
  1. GUANFACINE ER 2MG ACTAVIS [Suspect]
     Active Substance: GUANFACINE
     Indication: ATTENTION DEFICIT/HYPERACTIVITY DISORDER
     Dosage: QAM PO
     Route: 048
     Dates: start: 20160712

REACTIONS (5)
  - Impulsive behaviour [None]
  - Disease recurrence [None]
  - Psychomotor hyperactivity [None]
  - Disturbance in attention [None]
  - Product substitution issue [None]

NARRATIVE: CASE EVENT DATE: 20160712
